FAERS Safety Report 4799699-X (Version None)
Quarter: 2005Q4

REPORT INFORMATION
  Report Type: 
  Country: None (occurrence: None)
  Receive Date: 20051011
  Receipt Date: 20050926
  Transmission Date: 20060501
  Serious: Yes (Other)
  Sender: FDA-Public Use
  Company Number: 2005134057

PATIENT
  Age: 47 Year
  Sex: Female

DRUGS (2)
  1. RELPAX [Suspect]
     Indication: ILL-DEFINED DISORDER
     Dosage: 80 MG (40 MG, 2 IN 1 D), UNKNOWN
     Route: 065
     Dates: start: 20050101
  2. FRACTAL (FLUVASTATIN) [Concomitant]

REACTIONS (1)
  - DRUG DEPENDENCE [None]
